FAERS Safety Report 22086030 (Version 1)
Quarter: 2023Q1

REPORT INFORMATION
  Report Type: Spontaneous
  Country: CA (occurrence: CA)
  Receive Date: 20230310
  Receipt Date: 20230310
  Transmission Date: 20230418
  Serious: Yes (Other)
  Sender: FDA-Public Use
  Company Number: CA-PFIZER INC-202300104713

PATIENT
  Age: 58 Year
  Sex: Male

DRUGS (1)
  1. CIBINQO [Suspect]
     Active Substance: ABROCITINIB
     Indication: Dermatitis atopic
     Dosage: 200 MG, IN STUDY
     Route: 048
     Dates: start: 202106, end: 20230215

REACTIONS (2)
  - Cataract [Unknown]
  - Drug ineffective [Unknown]
